FAERS Safety Report 9646132 (Version 2)
Quarter: 2013Q4

REPORT INFORMATION
  Report Type: Report from Study
  Country: JP (occurrence: JP)
  Receive Date: 20131025
  Receipt Date: 20131129
  Transmission Date: 20140711
  Serious: Yes (Death)
  Sender: FDA-Public Use
  Company Number: JP-TAKEDA-TCI2013A06302

PATIENT
  Age: 75 Year
  Sex: Female
  Weight: 40.6 kg

DRUGS (8)
  1. LANSOPRAZOLE [Suspect]
     Indication: PROPHYLAXIS AGAINST GASTROINTESTINAL ULCER
     Dosage: 15 MG, QD
     Route: 048
     Dates: start: 20120711, end: 20121215
  2. BAYASPIRIN [Concomitant]
     Indication: THROMBOSIS PROPHYLAXIS
     Dosage: 100 MG, 1DAYS
     Route: 048
     Dates: end: 20121215
  3. LASIX                              /00032601/ [Concomitant]
     Dosage: 20 MG, 1DAYS
     Route: 048
  4. WARFARIN [Concomitant]
     Dosage: 1.75 MG, 1DAYS
     Route: 048
     Dates: end: 20121215
  5. ARTIST [Concomitant]
     Indication: ANGINA PECTORIS
     Dosage: 2.5 MG, 1DAYS
     Route: 048
     Dates: start: 20120824, end: 20121215
  6. SLOW-K [Concomitant]
     Dosage: 1200 MG, 1DAYS
     Route: 048
     Dates: start: 20120824, end: 20121215
  7. SIGMART [Concomitant]
     Indication: ANGINA PECTORIS
     Dosage: 10 MG, 1DAYS
     Route: 048
     Dates: start: 20120824, end: 20121215
  8. DIART [Concomitant]
     Indication: RENAL FAILURE CHRONIC
     Dosage: 75 MG, 1DAYS
     Route: 048
     Dates: start: 20120824, end: 20121215

REACTIONS (1)
  - Cardiac failure chronic [Fatal]
